FAERS Safety Report 5131938-8 (Version None)
Quarter: 2006Q4

REPORT INFORMATION
  Report Type: 
  Country: None (occurrence: None)
  Receive Date: 20061016
  Receipt Date: 20061003
  Transmission Date: 20070319
  Serious: Yes (Other)
  Sender: FDA-Public Use
  Company Number: 2006110646

PATIENT
  Age: 15 Year
  Sex: Female
  Weight: 43.9989 kg

DRUGS (4)
  1. DEPO-PROVERA [Suspect]
     Indication: CONTRACEPTION
     Dosage: SEE IMAGE
     Dates: start: 20050301, end: 20050301
  2. DEPO-PROVERA [Suspect]
     Indication: CONTRACEPTION
     Dosage: SEE IMAGE
     Dates: start: 20051209, end: 20051209
  3. DEPO-PROVERA [Suspect]
  4. DEPO-SUBQ PROVERA 104 [Suspect]
     Indication: CONTRACEPTION
     Dosage: (FIRST INJECTION), SUBCUTANEOUS
     Route: 058
     Dates: start: 20060224, end: 20060224

REACTIONS (5)
  - ARTHRALGIA [None]
  - DEVICE FAILURE [None]
  - GAIT DISTURBANCE [None]
  - INJECTION SITE REACTION [None]
  - WEIGHT FLUCTUATION [None]
